FAERS Safety Report 8141214-7 (Version None)
Quarter: 2012Q1

REPORT INFORMATION
  Report Type: 
  Country: None (occurrence: None)
  Receive Date: 20120216
  Receipt Date: 20120213
  Transmission Date: 20120608
  Serious: Yes (Hospitalization, Congenital Anomaly, Other)
  Sender: FDA-Public Use
  Company Number: US-PFIZER INC-2010109642

PATIENT
  Sex: Male
  Weight: 2.9 kg

DRUGS (8)
  1. ZOLOFT [Suspect]
     Indication: IRRITABILITY
     Dosage: 25 MG DAILY
     Route: 064
     Dates: start: 20021125, end: 20021130
  2. INSULIN [Concomitant]
     Dosage: UNK
     Route: 064
  3. MULTI-VITAMINS [Concomitant]
     Dosage: UNK
     Route: 064
     Dates: start: 20021116
  4. ALBUTEROL [Concomitant]
     Dosage: 2 PUFFS
     Route: 064
     Dates: start: 20030204
  5. ZOLOFT [Suspect]
     Dosage: 100 MG, HALF TABLET DAILY
     Route: 064
     Dates: start: 20030129
  6. ZOLOFT [Suspect]
     Indication: POSTPARTUM DEPRESSION
     Dosage: 50 MG DAILY
     Route: 064
     Dates: start: 20021201
  7. ZITHROMAX [Concomitant]
     Dosage: UNK
     Route: 064
     Dates: start: 20021017
  8. CLARITIN [Concomitant]
     Dosage: UNK
     Route: 064
     Dates: start: 20021116

REACTIONS (4)
  - OBSESSIVE-COMPULSIVE PERSONALITY DISORDER [None]
  - DERMOID CYST [None]
  - FOETAL EXPOSURE DURING PREGNANCY [None]
  - CRANIOSYNOSTOSIS [None]
